FAERS Safety Report 8739183 (Version 3)
Quarter: 2012Q4

REPORT INFORMATION
  Report Type: 
  Country: ZA (occurrence: ZA)
  Receive Date: 20120823
  Receipt Date: 20121018
  Transmission Date: 20130627
  Serious: Yes (Hospitalization)
  Sender: FDA-Public Use
  Company Number: ZA-ABBOTT-12P-143-0968575-00

PATIENT
  Sex: Male
  Weight: 110 kg

DRUGS (20)
  1. HUMIRA 40 MG/ 0.8 ML PRE-FILLED SYRINGE [Suspect]
     Indication: CROHN^S DISEASE
     Dosage: Wk0: 160mg Wk2: 80mg Wk4: 40mg eow
     Route: 058
     Dates: start: 20120727, end: 20120817
  2. FLAGYL [Concomitant]
     Indication: INFECTION PROPHYLAXIS
     Route: 048
     Dates: start: 20120717
  3. MEDROL [Concomitant]
     Indication: CROHN^S DISEASE
     Route: 048
  4. ORPIC [Concomitant]
     Indication: INFECTION PROPHYLAXIS
     Route: 048
  5. CHELA-FER [Concomitant]
     Indication: MINERAL SUPPLEMENTATION
     Route: 048
  6. SALAZOPYRIN [Concomitant]
     Indication: CROHN^S DISEASE
     Route: 048
  7. FOLIC ACID [Concomitant]
     Indication: VITAMIN SUPPLEMENTATION
     Route: 048
  8. METHOTREXATE [Concomitant]
     Indication: CROHN^S DISEASE
     Dosage: Weekly
     Route: 058
  9. ZIAK [Concomitant]
     Indication: HYPERTENSION
     Dosage: 5/6.25 mg daily
     Route: 048
  10. PREXUM [Concomitant]
     Indication: HYPERTENSION
     Route: 047
  11. LEXAMIL [Concomitant]
     Indication: PRODUCT USED FOR UNKNOWN INDICATION
     Route: 048
  12. INTERFLORA [Concomitant]
     Indication: CROHN^S DISEASE
     Route: 048
  13. LIPOGEN [Concomitant]
     Indication: BLOOD CHOLESTEROL INCREASED
     Route: 048
  14. CALCIFEROL [Concomitant]
     Indication: VITAMIN SUPPLEMENTATION
     Dosage: Weekly
     Route: 048
  15. TRAMACET [Concomitant]
     Indication: PAIN
     Route: 048
  16. OMEZ [Concomitant]
     Indication: PROPHYLAXIS AGAINST GASTROINTESTINAL ULCER
     Route: 048
  17. AZOR [Concomitant]
     Indication: ANXIETY
     Route: 048
  18. ZOLPIDEM [Concomitant]
     Indication: INSOMNIA
     Route: 048
  19. PYRICOS [Concomitant]
     Indication: GOUT
  20. PREDNISONE [Concomitant]
     Indication: CROHN^S DISEASE

REACTIONS (5)
  - Infected skin ulcer [Recovering/Resolving]
  - Abscess limb [Recovering/Resolving]
  - Sepsis [Recovering/Resolving]
  - Peripheral sensorimotor neuropathy [Recovering/Resolving]
  - Vasculitis [Recovering/Resolving]
